FAERS Safety Report 21180059 (Version 1)
Quarter: 2022Q3

REPORT INFORMATION
  Report Type: Spontaneous
  Country: US (occurrence: None)
  Receive Date: 20220805
  Receipt Date: 20220805
  Transmission Date: 20221026
  Serious: No
  Sender: FDA-Public Use
  Company Number: None

PATIENT
  Age: 64 Year
  Sex: Male
  Weight: 108 kg

DRUGS (1)
  1. CARBAMAZEPINE [Suspect]
     Active Substance: CARBAMAZEPINE
     Indication: Depression
     Dates: start: 20211220, end: 20220115

REACTIONS (4)
  - COVID-19 pneumonia [None]
  - Acute respiratory failure [None]
  - Drug reaction with eosinophilia and systemic symptoms [None]
  - Streptococcal bacteraemia [None]

NARRATIVE: CASE EVENT DATE: 20220115
